FAERS Safety Report 8037366-X (Version None)
Quarter: 2012Q1

REPORT INFORMATION
  Report Type: 
  Country: None (occurrence: None)
  Receive Date: 20120111
  Receipt Date: 20120106
  Transmission Date: 20120608
  Serious: Yes (Other)
  Sender: FDA-Public Use
  Company Number: AU-JNJFOC-20111210475

PATIENT
  Sex: Male

DRUGS (8)
  1. IRBESARTAN + HYDROCHLOROTHIAZIDE [Concomitant]
  2. STELARA [Suspect]
     Route: 058
     Dates: start: 20101120
  3. STELARA [Suspect]
     Route: 058
     Dates: start: 20110624
  4. STELARA [Suspect]
     Indication: PSORIASIS
     Route: 058
     Dates: start: 20101015
  5. STELARA [Suspect]
     Route: 058
     Dates: start: 20100917
  6. STELARA [Suspect]
     Route: 058
     Dates: start: 20110401
  7. STELARA [Suspect]
     Route: 058
     Dates: start: 20111107
  8. IBRUPROFEN [Concomitant]

REACTIONS (5)
  - PAIN IN EXTREMITY [None]
  - OEDEMA PERIPHERAL [None]
  - CONDITION AGGRAVATED [None]
  - INAPPROPRIATE SCHEDULE OF DRUG ADMINISTRATION [None]
  - ARTHRITIS [None]
